FAERS Safety Report 19785462 (Version 2)
Quarter: 2021Q3

REPORT INFORMATION
  Report Type: Report from Study
  Country: BR (occurrence: BR)
  Receive Date: 20210903
  Receipt Date: 20210910
  Transmission Date: 20211014
  Serious: Yes (Other)
  Sender: FDA-Public Use
  Company Number: NVSC2021BR195878

PATIENT
  Sex: Female
  Weight: 60 kg

DRUGS (3)
  1. ADALIMUMAB [Suspect]
     Active Substance: ADALIMUMAB
     Dosage: 300 MG, Q2W ( (ATTACK DOSES EVERY 15 DAYS))
     Route: 058
  2. ADALIMUMAB [Suspect]
     Active Substance: ADALIMUMAB
     Indication: PSORIATIC ARTHROPATHY
     Dosage: UNK
     Route: 065
     Dates: start: 202106, end: 20210815
  3. SYNTHROID [Concomitant]
     Active Substance: LEVOTHYROXINE SODIUM
     Indication: THYROID DISORDER
     Dosage: 1 DF, QD (15 YEARS AGO)
     Route: 048
     Dates: start: 20210830

REACTIONS (10)
  - Feeling abnormal [Unknown]
  - Headache [Recovered/Resolved]
  - Psoriatic arthropathy [Unknown]
  - Arthralgia [Unknown]
  - Dandruff [Unknown]
  - Blood pressure increased [Recovered/Resolved]
  - Joint range of motion decreased [Unknown]
  - Pruritus [Recovering/Resolving]
  - Arthropathy [Unknown]
  - Pain [Unknown]
